FAERS Safety Report 10166235 (Version 3)
Quarter: 2014Q2

REPORT INFORMATION
  Report Type: Spontaneous
  Country: US (occurrence: US)
  Receive Date: 20140512
  Receipt Date: 20140529
  Transmission Date: 20141212
  Serious: Yes (Hospitalization)
  Sender: FDA-Public Use
  Company Number: US-JNJFOC-20140503738

PATIENT
  Age: 80 Year
  Sex: Male
  Weight: 70.76 kg

DRUGS (1)
  1. SIMPONI [Suspect]
     Indication: COLITIS
     Route: 058
     Dates: start: 201402

REACTIONS (5)
  - Pneumonia [Recovering/Resolving]
  - Device malfunction [Unknown]
  - Drug dose omission [Unknown]
  - Device leakage [Recovered/Resolved]
  - Productive cough [Recovering/Resolving]
